FAERS Safety Report 8485562-X (Version None)
Quarter: 2012Q2

REPORT INFORMATION
  Report Type: 
  Country: None (occurrence: None)
  Receive Date: 20120627
  Receipt Date: 20120627
  Transmission Date: 20120825
  Serious: Yes (Other)
  Sender: FDA-Public Use
  Company Number: None

PATIENT
  Sex: Female
  Weight: 40.8237 kg

DRUGS (1)
  1. RECLAST [Suspect]
     Indication: OSTEOPOROSIS
     Dosage: ONCE A YEAR SUBDERMAL
     Route: 059
     Dates: start: 20110101, end: 20120101

REACTIONS (3)
  - DYSPHAGIA [None]
  - RASH GENERALISED [None]
  - VULVOVAGINAL RASH [None]
